FAERS Safety Report 5344984-6 (Version None)
Quarter: 2007Q2

REPORT INFORMATION
  Report Type: 
  Country: None (occurrence: None)
  Receive Date: 20070416
  Receipt Date: 20061220
  Transmission Date: 20071010
  Serious: No
  Sender: FDA-Public Use
  Company Number: 2006SP004456

PATIENT
  Age: 58 Year
  Sex: Male
  Weight: 95.2554 kg

DRUGS (10)
  1. LUNESTA [Suspect]
     Indication: INSOMNIA
     Dosage: SEE IMAGE
     Route: 048
     Dates: start: 20061001, end: 20061001
  2. LUNESTA [Suspect]
     Indication: INSOMNIA
     Dosage: SEE IMAGE
     Route: 048
     Dates: start: 20061219, end: 20061219
  3. ZETIA [Concomitant]
  4. ATORVASTATIN [Concomitant]
  5. LEVOTHYROXINE SODIUM [Concomitant]
  6. BENICAR [Concomitant]
  7. CELEBREX [Concomitant]
  8. ZANTAC [Concomitant]
  9. MULTIVITAMIN [Concomitant]
  10. AMBIEN [Concomitant]

REACTIONS (1)
  - DYSGEUSIA [None]
